FAERS Safety Report 6104728-7 (Version None)
Quarter: 2009Q1

REPORT INFORMATION
  Report Type: 
  Country: None (occurrence: None)
  Receive Date: 20090304
  Receipt Date: 20090219
  Transmission Date: 20090719
  Serious: Yes (Hospitalization)
  Sender: FDA-Public Use
  Company Number: 231929K09USA

PATIENT
  Age: 58 Year
  Sex: Male
  Weight: 75 kg

DRUGS (8)
  1. REBIF [Suspect]
     Indication: MULTIPLE SCLEROSIS
     Dosage: 44 MCG, 3 IN 1 WEEKS, SUBCUTANEOUS
     Route: 058
     Dates: start: 20080212
  2. SIMVASTATIN [Concomitant]
  3. FLUOXETINE [Concomitant]
  4. OMEPRAZOLE [Concomitant]
  5. NIASPAN [Concomitant]
  6. CARVEDIOL (CARVEDIOL) [Concomitant]
  7. FISH OIL (FISH OIL) [Concomitant]
  8. ASPIRIN [Concomitant]

REACTIONS (3)
  - ARTERIAL OCCLUSIVE DISEASE [None]
  - MYOCARDIAL INFARCTION [None]
  - THROMBOSIS [None]
